FAERS Safety Report 4309381-0 (Version None)
Quarter: 2004Q1

REPORT INFORMATION
  Report Type: 
  Country: None (occurrence: None)
  Receive Date: 20040302
  Receipt Date: 20040224
  Transmission Date: 20041129
  Serious: Yes (Death)
  Sender: FDA-Public Use
  Company Number: GB-ROCHE-359670

PATIENT
  Age: 67 Year
  Sex: Female
  Weight: 65 kg

DRUGS (9)
  1. CAPECITABINE [Suspect]
     Dosage: TWO WEEK TREATMENT AND ONE WEEK REST.
     Route: 048
     Dates: start: 20030203
  2. OXALIPLATIN [Suspect]
     Route: 042
     Dates: start: 20030203
  3. METOCLOPRAMIDE [Concomitant]
     Dates: start: 20040123, end: 20040219
  4. TEMAZEPAM [Concomitant]
     Dates: start: 20040123, end: 20040219
  5. DEXAMETHASONE [Concomitant]
     Dates: start: 20040116, end: 20040219
  6. FRUMIL [Concomitant]
     Dates: start: 20040116, end: 20040219
  7. LANSOPRAZOLE [Concomitant]
     Dates: start: 20040123, end: 20040219
  8. FLIXOTIDE [Concomitant]
     Dates: end: 20040219
  9. VENTOLIN [Concomitant]
     Dates: end: 20040219

REACTIONS (2)
  - DEEP VEIN THROMBOSIS [None]
  - PULMONARY EMBOLISM [None]
